FAERS Safety Report 17960757 (Version 1)
Quarter: 2020Q2

REPORT INFORMATION
  Report Type: Spontaneous
  Country: US (occurrence: US)
  Receive Date: 20200629
  Receipt Date: 20200629
  Transmission Date: 20200714
  Serious: No
  Sender: FDA-Public Use
  Company Number: US-ROCHE-2432767

PATIENT
  Sex: Female
  Weight: 57.66 kg

DRUGS (6)
  1. XELODA [Suspect]
     Active Substance: CAPECITABINE
     Indication: BREAST CANCER FEMALE
     Dosage: 1500 MG IN MORNING, 1500 MG IN EVENING, 7 DAYS ON AND THEN 7 DAYS OFF
     Route: 048
  2. METFORMIN [Concomitant]
     Active Substance: METFORMIN HYDROCHLORIDE
  3. IBUPROFEN. [Concomitant]
     Active Substance: IBUPROFEN
  4. DOCUSATE [Concomitant]
     Active Substance: DOCUSATE
  5. OXYCODONE [Concomitant]
     Active Substance: OXYCODONE
  6. METHIMAZOLE. [Concomitant]
     Active Substance: METHIMAZOLE

REACTIONS (2)
  - Pruritus [Not Recovered/Not Resolved]
  - Sunburn [Not Recovered/Not Resolved]
